FAERS Safety Report 5018843-2 (Version None)
Quarter: 2006Q2

REPORT INFORMATION
  Report Type: 
  Country: None (occurrence: None)
  Receive Date: 20060530
  Receipt Date: 20060517
  Transmission Date: 20061013
  Serious: Yes (Death)
  Sender: FDA-Public Use
  Company Number: 163-20785-06050604

PATIENT
  Age: 71 Year
  Sex: Female

DRUGS (1)
  1. THALOMID [Suspect]
     Indication: MULTIPLE MYELOMA
     Dosage: 50 - 100 MG, QD, ORAL
     Route: 048
     Dates: start: 20060228

REACTIONS (1)
  - ANEURYSM [None]
